FAERS Safety Report 8320699-7 (Version None)
Quarter: 2012Q2

REPORT INFORMATION
  Report Type: 
  Country: None (occurrence: None)
  Receive Date: 20120430
  Receipt Date: 20120424
  Transmission Date: 20120825
  Serious: Yes (Other)
  Sender: FDA-Public Use
  Company Number: US-AMGEN-USASP2011063446

PATIENT
  Age: 61 Year
  Sex: Female

DRUGS (1)
  1. ENBREL [Suspect]
     Indication: RHEUMATOID ARTHRITIS
     Dosage: 50 MG, QWK
     Dates: start: 20091215

REACTIONS (8)
  - FALL [None]
  - SCRATCH [None]
  - MUSCULOSKELETAL CHEST PAIN [None]
  - WEIGHT INCREASED [None]
  - SWELLING FACE [None]
  - INSOMNIA [None]
  - HEART RATE ABNORMAL [None]
  - CONTUSION [None]
